FAERS Safety Report 6108479-4 (Version None)
Quarter: 2009Q1

REPORT INFORMATION
  Report Type: 
  Country: None (occurrence: None)
  Receive Date: 20090309
  Receipt Date: 20090304
  Transmission Date: 20090719
  Serious: No
  Sender: FDA-Public Use
  Company Number: US-B.I. PHARMACEUTICALS,INC./RIDGEFIELD-2009-BP-02707BP

PATIENT
  Sex: Female

DRUGS (11)
  1. SPIRIVA [Suspect]
     Indication: CHRONIC OBSTRUCTIVE PULMONARY DISEASE
     Dosage: 18MCG
     Route: 055
     Dates: start: 20080101
  2. PAROXETINE HCL [Concomitant]
     Indication: PANIC DISORDER
  3. PAROXETINE HCL [Concomitant]
     Indication: ANXIETY
  4. TRAZODONE HCL [Concomitant]
     Indication: PANIC DISORDER
  5. TRAZODONE HCL [Concomitant]
     Indication: ANXIETY
  6. ALPRAZOLAM [Concomitant]
     Indication: PANIC DISORDER
  7. ALPRAZOLAM [Concomitant]
     Indication: ANXIETY
  8. LEVOTHYROXINE SODIUM [Concomitant]
     Indication: THYROIDECTOMY
  9. FLOVENT [Concomitant]
     Indication: CHRONIC OBSTRUCTIVE PULMONARY DISEASE
  10. PROVENTIL [Concomitant]
     Indication: CHRONIC OBSTRUCTIVE PULMONARY DISEASE
  11. CLOTRIMAZOLE [Concomitant]
     Indication: FUNGAL INFECTION

REACTIONS (6)
  - BACK PAIN [None]
  - CATARACT [None]
  - CHEST PAIN [None]
  - COUGH [None]
  - DRY MOUTH [None]
  - LUNG DISORDER [None]
